FAERS Safety Report 5308738-9 (Version None)
Quarter: 2007Q2

REPORT INFORMATION
  Report Type: 
  Country: None (occurrence: None)
  Receive Date: 20070426
  Receipt Date: 20070418
  Transmission Date: 20071010
  Serious: Yes (Hospitalization)
  Sender: FDA-Public Use
  Company Number: US-ROCHE-493478

PATIENT
  Age: 15 Year
  Sex: Female

DRUGS (5)
  1. KLONOPIN [Suspect]
     Dosage: SECOND INDICATION REPORTED AS TO CALM DOWN
     Route: 065
     Dates: start: 20060615
  2. LAMICTAL [Concomitant]
     Dates: start: 20050615
  3. SEROQUEL [Concomitant]
     Dates: start: 20050615
  4. ZOLOFT [Concomitant]
     Indication: BIPOLAR DISORDER
     Dates: start: 20050615
  5. STRATTERA [Concomitant]
     Dates: start: 20050615

REACTIONS (5)
  - ALCOHOL USE [None]
  - ANAEMIA [None]
  - DRUG ADMINISTRATION ERROR [None]
  - EUPHORIC MOOD [None]
  - OBSESSIVE-COMPULSIVE DISORDER [None]
